FAERS Safety Report 18458672 (Version 2)
Quarter: 2025Q1

REPORT INFORMATION
  Report Type: Spontaneous
  Country: CA (occurrence: CA)
  Receive Date: 20201103
  Receipt Date: 20250221
  Transmission Date: 20250409
  Serious: Yes (Other)
  Sender: SANOFI AVENTIS
  Company Number: CA-SA-2020SA305002

PATIENT
  Age: 54 Year
  Sex: Female

DRUGS (18)
  1. HYDROXYCHLOROQUINE SULFATE [Suspect]
     Active Substance: HYDROXYCHLOROQUINE SULFATE
     Dosage: 200 MG, BID
  2. KEVZARA [Suspect]
     Active Substance: SARILUMAB
  3. METHOTREXATE [Suspect]
     Active Substance: METHOTREXATE
     Dosage: 25 MG, QW
     Route: 058
  4. ORENCIA [Suspect]
     Active Substance: ABATACEPT
  5. XELJANZ [Suspect]
     Active Substance: TOFACITINIB CITRATE
     Indication: Rheumatoid arthritis
     Route: 048
  6. ENBREL [Suspect]
     Active Substance: ETANERCEPT
     Indication: Rheumatoid arthritis
  7. ACTEMRA [Suspect]
     Active Substance: TOCILIZUMAB
  8. ACETAMINOPHEN [Concomitant]
     Active Substance: ACETAMINOPHEN
  9. ACETAMINOPHEN\CODEINE PHOSPHATE [Concomitant]
     Active Substance: ACETAMINOPHEN\CODEINE PHOSPHATE
  10. ALUMINUM ACETATE [Concomitant]
     Active Substance: ALUMINUM ACETATE
  11. ATACAND [Concomitant]
     Active Substance: CANDESARTAN CILEXETIL
  12. BENZETHONIUM CHLORIDE [Concomitant]
     Active Substance: BENZETHONIUM CHLORIDE
  13. ERGOCALCIFEROL [Concomitant]
     Active Substance: ERGOCALCIFEROL
  14. FOLIC ACID [Concomitant]
     Active Substance: FOLIC ACID
  15. HYDRODIURIL [Concomitant]
     Active Substance: HYDROCHLOROTHIAZIDE
  16. NEURONTIN [Concomitant]
     Active Substance: GABAPENTIN
     Dosage: 600 MG, TID
  17. PREMARIN [Concomitant]
     Active Substance: ESTROGENS, CONJUGATED
  18. TYLENOL [Concomitant]
     Active Substance: ACETAMINOPHEN
     Dosage: 650 MG, BID

REACTIONS (7)
  - Rheumatoid arthritis [Unknown]
  - Headache [Unknown]
  - Hypersensitivity [Unknown]
  - Nausea [Unknown]
  - Drug ineffective [Unknown]
  - Off label use [Unknown]
  - Therapeutic product effect decreased [Unknown]
